FAERS Safety Report 6102075-0 (Version None)
Quarter: 2009Q1

REPORT INFORMATION
  Report Type: 
  Country: None (occurrence: None)
  Receive Date: 20090304
  Receipt Date: 20090302
  Transmission Date: 20090719
  Serious: Yes (Other)
  Sender: FDA-Public Use
  Company Number: US-PFIZER INC-2009157530

PATIENT
  Sex: Female

DRUGS (2)
  1. ESTRING [Suspect]
     Dates: start: 20090101, end: 20090101
  2. METRONIDAZOLE AND METRONIDAZOLE BENZOATE AND METRONIDAZOLE HYDROCHLORI [Suspect]
     Dates: start: 20090101, end: 20090101

REACTIONS (1)
  - EPILEPTIC AURA [None]
